FAERS Safety Report 5767629-X (Version None)
Quarter: 2008Q2

REPORT INFORMATION
  Report Type: 
  Country: None (occurrence: None)
  Receive Date: 20080612
  Receipt Date: 20080604
  Transmission Date: 20081010
  Serious: Yes (Other)
  Sender: FDA-Public Use
  Company Number: US-BAYER-200810159BCC

PATIENT
  Age: 78 Year
  Sex: Male
  Weight: 77 kg

DRUGS (2)
  1. ALKA-SELTZER PLUS LIQUID GELS DAY [Suspect]
     Indication: NASOPHARYNGITIS
     Route: 048
     Dates: start: 20071222
  2. ALKA SELTZER PLUS LIQUID GELS NIGHT [Suspect]
     Indication: NASOPHARYNGITIS
     Route: 048
     Dates: start: 20071222

REACTIONS (5)
  - ABASIA [None]
  - COLD SWEAT [None]
  - DYSSTASIA [None]
  - VIRAL INFECTION [None]
  - VOMITING [None]
